FAERS Safety Report 10171923 (Version 6)
Quarter: 2014Q3

REPORT INFORMATION
  Report Type: Spontaneous
  Country: JP (occurrence: JP)
  Receive Date: 20140515
  Receipt Date: 20140710
  Transmission Date: 20150326
  Serious: Yes (Other)
  Sender: FDA-Public Use
  Company Number: JP-PFIZER INC-2014131872

PATIENT
  Age: 63 Year
  Sex: Male
  Weight: 53 kg

DRUGS (10)
  1. LOXOPROFEN [Suspect]
     Active Substance: LOXOPROFEN
     Indication: PAIN
  2. BLOPRESS [Concomitant]
     Active Substance: CANDESARTAN CILEXETIL
     Dosage: UNK
  3. ADONA [Concomitant]
     Active Substance: CARBAZOCHROME SODIUM SULFONATE
     Dosage: 30 MG, DAILY
     Route: 048
  4. UNISIA [Suspect]
     Active Substance: AMLODIPINE BESYLATE\CANDESARTAN CILEXETIL
     Indication: HYPERTENSION
     Dosage: 1 DF, 1X/DAY
     Route: 048
  5. LOXOPROFEN [Suspect]
     Active Substance: LOXOPROFEN
     Indication: PYREXIA
     Dosage: 1 DF, AS NEEDED
     Route: 048
     Dates: end: 20140312
  6. CELECOX [Suspect]
     Active Substance: CELECOXIB
     Indication: POSTOPERATIVE ANALGESIA
     Dosage: 200 MG, 2X/DAY
     Route: 048
     Dates: start: 20140312, end: 20140325
  7. ZOLPIDEM TARTRATE PFIZER [Suspect]
     Active Substance: ZOLPIDEM TARTRATE
     Indication: INSOMNIA
     Dosage: 5 MG, 1X/DAY
     Route: 048
     Dates: start: 20140223
  8. GASMOTIN [Suspect]
     Active Substance: MOSAPRIDE CITRATE
     Indication: ABDOMINAL DISCOMFORT
     Dosage: 5 MG, 3X/DAY
     Route: 048
     Dates: start: 20140312
  9. ANTEBATE [Concomitant]
     Active Substance: BETAMETHASONE DIPROPIONATE
     Dosage: UNK
  10. AMLODIN [Concomitant]
     Active Substance: AMLODIPINE BESYLATE
     Dosage: UNK

REACTIONS (1)
  - Henoch-Schonlein purpura [Recovering/Resolving]

NARRATIVE: CASE EVENT DATE: 20140322
